FAERS Safety Report 9298708 (Version 1)
Quarter: 2013Q2

REPORT INFORMATION
  Report Type: Report from Study
  Country: AT (occurrence: AT)
  Receive Date: 20130520
  Receipt Date: 20130520
  Transmission Date: 20140414
  Serious: Yes (Hospitalization)
  Sender: FDA-Public Use
  Company Number: AT-ROCHE-1225791

PATIENT
  Sex: 0

DRUGS (8)
  1. BEVACIZUMAB [Suspect]
     Indication: COLON CANCER
     Route: 065
  2. BEVACIZUMAB [Suspect]
     Indication: RECTAL CANCER
  3. CAPECITABINE [Suspect]
     Indication: COLON CANCER
     Route: 065
  4. CAPECITABINE [Suspect]
     Indication: RECTAL CANCER
  5. IRINOTECAN [Suspect]
     Indication: COLON CANCER
     Route: 065
  6. IRINOTECAN [Suspect]
     Indication: RECTAL CANCER
  7. OXALIPLATIN [Suspect]
     Indication: COLON CANCER
     Route: 065
  8. OXALIPLATIN [Suspect]
     Indication: RECTAL CANCER

REACTIONS (1)
  - Renal failure [Not Recovered/Not Resolved]
